FAERS Safety Report 5503614-0 (Version None)
Quarter: 2007Q4

REPORT INFORMATION
  Report Type: 
  Country: None (occurrence: None)
  Receive Date: 20071030
  Receipt Date: 20071015
  Transmission Date: 20080405
  Serious: Yes (Other)
  Sender: FDA-Public Use
  Company Number: 2007001704

PATIENT
  Age: 40 Year
  Sex: Male

DRUGS (4)
  1. TARCEVA [Suspect]
     Indication: NON-SMALL CELL LUNG CANCER
     Dosage: (150 MG), ORAL
     Route: 048
     Dates: start: 20070830
  2. MEDROL [Suspect]
     Dates: start: 20040615
  3. OMEPRAZOLE [Suspect]
  4. ATACAND [Suspect]

REACTIONS (7)
  - CIRCUMORAL OEDEMA [None]
  - FACE OEDEMA [None]
  - LOCALISED OEDEMA [None]
  - PAIN OF SKIN [None]
  - RASH PAPULAR [None]
  - RASH PUSTULAR [None]
  - TENDERNESS [None]
